FAERS Safety Report 11031645 (Version 1)
Quarter: 2015Q2

REPORT INFORMATION
  Report Type: Spontaneous
  Country: US (occurrence: US)
  Receive Date: 20150415
  Receipt Date: 20150415
  Transmission Date: 20150821
  Serious: No
  Sender: FDA-Public Use
  Company Number: US-SA-2015SA009516

PATIENT
  Age: 88 Year
  Sex: Female

DRUGS (7)
  1. FLUTICASONE PROPIONATE. [Suspect]
     Active Substance: FLUTICASONE PROPIONATE
     Route: 065
  2. DEMEROL [Suspect]
     Active Substance: MEPERIDINE HYDROCHLORIDE
     Route: 065
  3. CELEBREX [Suspect]
     Active Substance: CELECOXIB
     Route: 065
  4. AMIODARONE HYDROCHLORIDE. [Suspect]
     Active Substance: AMIODARONE HYDROCHLORIDE
     Route: 065
  5. DIGOXIN. [Suspect]
     Active Substance: DIGOXIN
     Route: 065
  6. WARFARIN [Suspect]
     Active Substance: WARFARIN
     Route: 065
  7. NTG [Suspect]
     Active Substance: NITROGLYCERIN
     Route: 065

REACTIONS (1)
  - Drug hypersensitivity [Unknown]
